FAERS Safety Report 7273075-2 (Version None)
Quarter: 2011Q1

REPORT INFORMATION
  Report Type: 
  Country: None (occurrence: None)
  Receive Date: 20110203
  Receipt Date: 20101222
  Transmission Date: 20110831
  Serious: Yes (Death, Other)
  Sender: FDA-Public Use
  Company Number: US-BAXTER-2010BH003371

PATIENT
  Age: 58 Year
  Sex: Male

DRUGS (1)
  1. HEPARIN SODIUM INJECTION [Suspect]
     Indication: VENOUS OPERATION
     Route: 042
     Dates: start: 20080507, end: 20080507

REACTIONS (12)
  - PULSELESS ELECTRICAL ACTIVITY [None]
  - TACHYCARDIA [None]
  - CARDIAC FAILURE [None]
  - STAPHYLOCOCCAL BACTERAEMIA [None]
  - DYSPNOEA [None]
  - PHARYNGEAL OEDEMA [None]
  - HYPOXIC-ISCHAEMIC ENCEPHALOPATHY [None]
  - HYPOTENSION [None]
  - SEPSIS [None]
  - HYPOXIA [None]
  - ERYTHEMA [None]
  - HYPERHIDROSIS [None]
